FAERS Safety Report 21018606 (Version 1)
Quarter: 2022Q3

REPORT INFORMATION
  Report Type: Spontaneous
  Country: HK (occurrence: HK)
  Receive Date: 20220628
  Receipt Date: 20220628
  Transmission Date: 20221027
  Serious: Yes (Hospitalization, Other)
  Sender: FDA-Public Use
  Company Number: HK-NOVARTISPH-NVSC2022HK143603

PATIENT

DRUGS (1)
  1. COSENTYX [Suspect]
     Active Substance: SECUKINUMAB
     Indication: Product used for unknown indication
     Dosage: 150 MG (COMPLETED 3 DOSES COSENTYX)
     Route: 065
     Dates: start: 20220523

REACTIONS (4)
  - Haematuria [Unknown]
  - Nephrolithiasis [Unknown]
  - Abdominal pain [Unknown]
  - Colitis [Unknown]
